FAERS Safety Report 8029656-1 (Version None)
Quarter: 2012Q1

REPORT INFORMATION
  Report Type: 
  Country: None (occurrence: None)
  Receive Date: 20120109
  Receipt Date: 20120102
  Transmission Date: 20120608
  Serious: Yes (Other)
  Sender: FDA-Public Use
  Company Number: BR-PFIZER INC-2011213579

PATIENT
  Age: 41 Year
  Sex: Female
  Weight: 74 kg

DRUGS (9)
  1. PREMARIN [Suspect]
     Indication: HORMONE REPLACEMENT THERAPY
     Dosage: 0.3 MG PER DAY
     Route: 048
     Dates: start: 20110701, end: 20110101
  2. PREMARIN [Suspect]
     Indication: LOSS OF LIBIDO
  3. FLUOXETINE [Concomitant]
     Indication: DEPRESSION
     Dosage: UNK
  4. CLONAZEPAM [Concomitant]
     Indication: SLEEP DISORDER
     Dosage: UNK
     Dates: start: 20070101
  5. CLONAZEPAM [Concomitant]
     Indication: INSOMNIA
  6. ANDROSTEN [Concomitant]
     Indication: HORMONE REPLACEMENT THERAPY
     Dosage: UNK
     Dates: start: 20110801
  7. GINSENG [Concomitant]
     Indication: DRUG THERAPY
  8. GUARANA [Concomitant]
     Indication: DRUG THERAPY
  9. PREMARIN [Suspect]
     Indication: DYSPAREUNIA
     Dosage: APPLICATION 2X/WEEK
     Route: 067
     Dates: start: 20110902, end: 20110101

REACTIONS (20)
  - HEADACHE [None]
  - MENTAL DISORDER [None]
  - MEMORY IMPAIRMENT [None]
  - RENAL PAIN [None]
  - NERVOUSNESS [None]
  - ANXIETY [None]
  - PAIN [None]
  - INSOMNIA [None]
  - WEIGHT INCREASED [None]
  - MOOD ALTERED [None]
  - MYALGIA [None]
  - STRESS [None]
  - DISCOMFORT [None]
  - DEPRESSION [None]
  - LIMB DISCOMFORT [None]
  - PANIC REACTION [None]
  - BREAST ENLARGEMENT [None]
  - IRRITABILITY [None]
  - ABDOMINAL PAIN [None]
  - BREAST PAIN [None]
